FAERS Safety Report 8620278 (Version 2)
Quarter: 2013Q3

REPORT INFORMATION
  Report Type: Report from Study
  Country: DE (occurrence: DE)
  Receive Date: 20120618
  Receipt Date: 20130912
  Transmission Date: 20140515
  Serious: Yes (Other)
  Sender: FDA-Public Use
  Company Number: DE-ROCHE-1020819

PATIENT
  Sex: 0

DRUGS (3)
  1. RITUXIMAB [Suspect]
     Indication: LYMPHOMA
     Dosage: ON DAY 1
     Route: 065
  2. TEMSIROLIMUS [Suspect]
     Indication: LYMPHOMA
     Dosage: ON DAY 2,8,15 AND ON 28 TH CYCLE
     Route: 065
  3. BENDAMUSTINE [Suspect]
     Indication: LYMPHOMA
     Dosage: FOR DAY 1 TO 2
     Route: 065

REACTIONS (9)
  - Leukopenia [Unknown]
  - Thrombocytopenia [Unknown]
  - Blood triglycerides increased [Unknown]
  - Pneumonitis [Unknown]
  - Hyperglycaemia [Unknown]
  - Hypertension [Unknown]
  - Lymphopenia [Unknown]
  - Neutropenia [Unknown]
  - Thrombocytopenia [Unknown]
